FAERS Safety Report 7883481-0 (Version None)
Quarter: 2011Q4

REPORT INFORMATION
  Report Type: 
  Country: None (occurrence: None)
  Receive Date: 20111102
  Receipt Date: 20110425
  Transmission Date: 20120403
  Serious: Yes (Other)
  Sender: FDA-Public Use
  Company Number: US-GLAXOSMITHKLINE-A0871663A

PATIENT
  Age: 69 Year
  Sex: Male
  Weight: 170 kg

DRUGS (3)
  1. DIGOXIN [Concomitant]
  2. CRESTOR [Concomitant]
  3. RYTHMOL SR [Suspect]
     Indication: ATRIAL FIBRILLATION
     Dosage: 225MG TWICE PER DAY
     Route: 048

REACTIONS (1)
  - NORMOCHROMIC NORMOCYTIC ANAEMIA [None]
